FAERS Safety Report 6544157-5 (Version None)
Quarter: 2010Q1

REPORT INFORMATION
  Report Type: 
  Country: None (occurrence: None)
  Receive Date: 20100120
  Receipt Date: 20090701
  Transmission Date: 20100710
  Serious: No
  Sender: FDA-Public Use
  Company Number: US-ALLERGAN-0909262US

PATIENT
  Age: 10 Year
  Sex: Female

DRUGS (4)
  1. PRED FORTE [Suspect]
     Indication: EYE INFLAMMATION
     Dosage: UNK, TID
     Route: 047
     Dates: start: 20070101
  2. PRED FORTE [Suspect]
     Dosage: UNK, BID
     Route: 047
  3. PRED FORTE [Suspect]
     Dosage: UNK, BID-QD
     Route: 047
  4. XIBROM [Concomitant]
     Route: 047

REACTIONS (1)
  - BLOOD GLUCOSE INCREASED [None]
